FAERS Safety Report 4317850-2 (Version None)
Quarter: 2004Q1

REPORT INFORMATION
  Report Type: 
  Country: None (occurrence: None)
  Receive Date: 20040316
  Receipt Date: 20040304
  Transmission Date: 20041129
  Serious: Yes (Life-Threatening)
  Sender: FDA-Public Use
  Company Number: FR-BRISTOL-MYERS SQUIBB COMPANY-12523684

PATIENT
  Age: 34 Year
  Sex: Male

DRUGS (13)
  1. BRISTOPEN INJ 1 G [Suspect]
     Route: 042
     Dates: start: 20040206, end: 20040208
  2. PERFALGAN IV [Suspect]
     Route: 042
     Dates: start: 20040118, end: 20040203
  3. FORTUM [Suspect]
     Route: 042
     Dates: start: 20040128, end: 20040203
  4. BURINEX [Suspect]
     Dates: start: 20040118, end: 20040203
  5. ERYTHROMYCIN [Suspect]
     Dates: start: 20040118, end: 20040123
  6. HELIOX [Concomitant]
  7. AUGMENTIN [Concomitant]
  8. CIFLOX [Concomitant]
  9. EUPRESSYL [Concomitant]
  10. SUFENTA [Concomitant]
  11. SALBUTAMOL [Concomitant]
  12. MIDAZOLAM HCL [Concomitant]
  13. TIENAM [Concomitant]

REACTIONS (5)
  - AGRANULOCYTOSIS [None]
  - DERMATITIS BULLOUS [None]
  - SEPSIS [None]
  - STATUS ASTHMATICUS [None]
  - SUPERINFECTION [None]
